FAERS Safety Report 14445045 (Version 1)
Quarter: 2018Q1

REPORT INFORMATION
  Report Type: Spontaneous
  Country: US (occurrence: US)
  Receive Date: 20180125
  Receipt Date: 20180125
  Transmission Date: 20180509
  Serious: Yes (Hospitalization)
  Sender: FDA-Public Use
  Company Number: None

PATIENT
  Age: 67 Year
  Sex: Female

DRUGS (2)
  1. FASLODEX [Concomitant]
     Active Substance: FULVESTRANT
  2. IBRANCE [Suspect]
     Active Substance: PALBOCICLIB
     Indication: BREAST CANCER FEMALE
     Dosage: 100 MG    QD ON DAYS 1-21 OUT OF 28 DAYS CYCLE
     Route: 048
     Dates: start: 20170612

REACTIONS (5)
  - Metastases to bone [None]
  - Anal fissure [None]
  - Tumour marker abnormal [None]
  - Hyperkeratosis [None]
  - Alopecia [None]
